FAERS Safety Report 5692847-9 (Version None)
Quarter: 2008Q2

REPORT INFORMATION
  Report Type: 
  Country: None (occurrence: None)
  Receive Date: 20080401
  Receipt Date: 20080212
  Transmission Date: 20081010
  Serious: Yes (Hospitalization)
  Sender: FDA-Public Use
  Company Number: 2008AL001625

PATIENT
  Sex: Female

DRUGS (3)
  1. BACLOFEN [Suspect]
     Dosage: 20 MG; PO
     Route: 048
     Dates: start: 20070304, end: 20070307
  2. RIVOTRIL [Concomitant]
  3. CYCLIZINE [Concomitant]

REACTIONS (16)
  - ANOREXIA [None]
  - DEPRESSION [None]
  - DIARRHOEA [None]
  - DIPLOPIA [None]
  - DRUG WITHDRAWAL SYNDROME [None]
  - DRY MOUTH [None]
  - DYSGEUSIA [None]
  - EAR INFECTION [None]
  - MENSTRUAL DISORDER [None]
  - MYOPATHY [None]
  - NIGHTMARE [None]
  - PALPITATIONS [None]
  - PARAESTHESIA [None]
  - VAGINAL DISCHARGE [None]
  - VERTIGO [None]
  - WEIGHT DECREASED [None]
